FAERS Safety Report 6407630-6 (Version None)
Quarter: 2009Q4

REPORT INFORMATION
  Report Type: 
  Country: None (occurrence: None)
  Receive Date: 20091020
  Receipt Date: 20091007
  Transmission Date: 20100525
  Serious: Yes (Hospitalization)
  Sender: FDA-Public Use
  Company Number: PHHY2009FR37914

PATIENT
  Sex: Male
  Weight: 78 kg

DRUGS (5)
  1. ACLASTA [Suspect]
     Indication: OSTEOPOROSIS
     Dosage: UNK
     Dates: start: 20090901
  2. OXEOL [Concomitant]
     Dosage: 20 MG, QD
  3. THEOSTAT [Concomitant]
     Dosage: 300 MG, BID
  4. PROKINYL [Concomitant]
     Dosage: 15 MG, BID
  5. INIPOMP [Concomitant]
     Dosage: 40 MG, QD

REACTIONS (6)
  - HAEMOPHILUS INFECTION [None]
  - LOSS OF CONSCIOUSNESS [None]
  - LUNG INFECTION [None]
  - MALAISE [None]
  - PYREXIA [None]
  - RHONCHI [None]
